FAERS Safety Report 7593409-9 (Version None)
Quarter: 2011Q3

REPORT INFORMATION
  Report Type: 
  Country: None (occurrence: None)
  Receive Date: 20110706
  Receipt Date: 20110629
  Transmission Date: 20111222
  Serious: Yes (Hospitalization)
  Sender: FDA-Public Use
  Company Number: FR-MERCK-1106FRA00121

PATIENT
  Age: 69 Year
  Sex: Female

DRUGS (10)
  1. ROSUVASTATIN CALCIUM [Concomitant]
     Route: 065
  2. ESOMEPRAZOLE MAGNESIUM [Concomitant]
     Route: 065
  3. FUROSEMIDE [Concomitant]
     Route: 065
  4. WARFARIN SODIUM [Suspect]
     Indication: ATRIAL FIBRILLATION
     Route: 048
  5. CANDESARTAN CILEXETIL [Concomitant]
     Route: 065
  6. THIOCOLCHICOSIDE [Concomitant]
     Route: 065
  7. ATENOLOL [Concomitant]
     Route: 065
  8. SUPROFEN [Concomitant]
     Route: 065
  9. NOROXIN [Suspect]
     Indication: PYELONEPHRITIS
     Route: 048
     Dates: start: 20110501
  10. ASPIRIN [Suspect]
     Indication: ISCHAEMIC CARDIOMYOPATHY
     Route: 048

REACTIONS (3)
  - INTERNATIONAL NORMALISED RATIO INCREASED [None]
  - HAEMOPTYSIS [None]
  - DRUG INTERACTION [None]
